FAERS Safety Report 7276736-4 (Version None)
Quarter: 2011Q1

REPORT INFORMATION
  Report Type: 
  Country: None (occurrence: None)
  Receive Date: 20110204
  Receipt Date: 20110125
  Transmission Date: 20110831
  Serious: Yes (Hospitalization, Other)
  Sender: FDA-Public Use
  Company Number: FR-PFIZER INC-2011017140

PATIENT
  Age: 52 Year
  Sex: Male

DRUGS (6)
  1. LYRICA [Suspect]
     Indication: ALCOHOLISM
     Dosage: 300 MG DAILY
     Route: 048
     Dates: start: 20101001
  2. ISOPTIN [Interacting]
     Indication: HYPERTENSION
     Dosage: UNK
     Route: 048
     Dates: start: 20110101, end: 20110104
  3. BACLOFEN [Interacting]
     Indication: ALCOHOLISM
     Dosage: 10 TO 16 TABLETS DAILY
     Route: 048
     Dates: start: 20101001
  4. ISOPTIN [Interacting]
     Dosage: UNK
     Route: 048
     Dates: end: 20101001
  5. OLMESARTAN MEDOXOMIL [Interacting]
     Dosage: UNK
     Route: 048
     Dates: start: 20010101, end: 20110104
  6. OLMESARTAN MEDOXOMIL [Interacting]
     Indication: HYPERTENSION
     Dosage: UNK
     Route: 048
     Dates: end: 20101001

REACTIONS (5)
  - DRUG INTERACTION [None]
  - RENAL FAILURE ACUTE [None]
  - RENAL TUBULAR DISORDER [None]
  - PROSTATITIS [None]
  - HYPOTENSION [None]
